FAERS Safety Report 16325323 (Version 1)
Quarter: 2019Q2

REPORT INFORMATION
  Report Type: Spontaneous
  Country: CA (occurrence: US)
  Receive Date: 20190517
  Receipt Date: 20190517
  Transmission Date: 20190711
  Serious: No
  Sender: FDA-Public Use
  Company Number: CA-AMGEN-USASP2019074580

PATIENT
  Age: 53 Year
  Sex: Female

DRUGS (1)
  1. REPATHA [Suspect]
     Active Substance: EVOLOCUMAB
     Indication: PRODUCT USED FOR UNKNOWN INDICATION
     Dosage: 140 MILLIGRAM, EVERY 10 DAYS
     Route: 065

REACTIONS (5)
  - Intentional product misuse [Unknown]
  - Injection site pain [Unknown]
  - Injection site reaction [Unknown]
  - Drug ineffective [Unknown]
  - Eye disorder [Unknown]
